FAERS Safety Report 17521834 (Version 1)
Quarter: 2020Q1

REPORT INFORMATION
  Report Type: Spontaneous
  Country: IT (occurrence: IT)
  Receive Date: 20200310
  Receipt Date: 20200310
  Transmission Date: 20200409
  Serious: Yes (Other)
  Sender: FDA-Public Use
  Company Number: IT-PFIZER INC-2020103224

PATIENT
  Age: 65 Year
  Sex: Female

DRUGS (3)
  1. XANAX [Suspect]
     Active Substance: ALPRAZOLAM
     Dosage: 1 DF, SINGLE
     Route: 048
     Dates: start: 20200212, end: 20200212
  2. RULID [Suspect]
     Active Substance: ROXITHROMYCIN
     Dosage: 2 DF, SINGLE
     Route: 048
     Dates: start: 20200212, end: 20200212
  3. ORELOX [Suspect]
     Active Substance: CEFPODOXIME
     Dosage: 2 DF, SINGLE
     Route: 048
     Dates: start: 20200212, end: 20200212

REACTIONS (2)
  - Drug abuse [Recovering/Resolving]
  - Dyspepsia [Recovering/Resolving]

NARRATIVE: CASE EVENT DATE: 20200212
